FAERS Safety Report 10124648 (Version 2)
Quarter: 2015Q1

REPORT INFORMATION
  Report Type: Other
  Country: US (occurrence: US)
  Receive Date: 20140427
  Receipt Date: 20150213
  Transmission Date: 20150720
  Serious: Yes (Hospitalization, Other)
  Sender: FDA-Public Use
  Company Number: US-GSKPPD-2014GSK022017

PATIENT
  Age: 61 Year
  Sex: Male

DRUGS (9)
  1. CLOPIDOGREL [Concomitant]
     Active Substance: CLOPIDOGREL BISULFATE
     Dates: start: 20041026
  2. LISINOPRIL. [Concomitant]
     Active Substance: LISINOPRIL
     Route: 048
     Dates: start: 20041112
  3. CLONIDINE. [Concomitant]
     Active Substance: CLONIDINE
     Dates: start: 20041026
  4. HEPARIN [Concomitant]
     Active Substance: HEPARIN SODIUM
     Dosage: TREATMENT MEDICATION
     Route: 042
     Dates: start: 20041026, end: 20041112
  5. ASPIRIN. [Concomitant]
     Active Substance: ASPIRIN
     Dates: start: 20041026
  6. WARFARIN [Concomitant]
     Active Substance: WARFARIN
     Dosage: TREATMENT MEDICATION
     Route: 048
     Dates: start: 20041026
  7. FUROSEMIDE. [Concomitant]
     Active Substance: FUROSEMIDE
     Dates: start: 20041026
  8. AVANDIA [Suspect]
     Active Substance: ROSIGLITAZONE MALEATE
     Indication: DIABETES MELLITUS
     Dosage: DATES OF AVANDIA USE COULD NOT BE CONFIRMED IN RECORDS REVIEWED.
     Route: 048
  9. ACETYLSALICYLIC ACID, DIPYRIDAMOLE [Concomitant]
     Dates: start: 20041026

REACTIONS (1)
  - Basal ganglia stroke [Recovered/Resolved]

NARRATIVE: CASE EVENT DATE: 20041026
